FAERS Safety Report 9551694 (Version 2)
Quarter: 2013Q4

REPORT INFORMATION
  Report Type: Report from Study
  Country: CA (occurrence: CA)
  Receive Date: 20130925
  Receipt Date: 20131113
  Transmission Date: 20140711
  Serious: Yes (Life-Threatening)
  Sender: FDA-Public Use
  Company Number: CA-ROCHE-1279970

PATIENT
  Sex: Male

DRUGS (23)
  1. RITUXAN [Suspect]
     Indication: RHEUMATOID ARTHRITIS
     Dosage: DAY 1 15, LAST DOSE ON:21/AUG/2012
     Route: 042
     Dates: start: 20120807
  2. RITUXAN [Suspect]
     Route: 042
     Dates: start: 20120821
  3. METFORMIN [Suspect]
     Indication: PRODUCT USED FOR UNKNOWN INDICATION
     Route: 065
  4. BISOPROLOL [Suspect]
     Indication: PRODUCT USED FOR UNKNOWN INDICATION
     Route: 065
     Dates: start: 2013
  5. TYLENOL [Concomitant]
     Route: 048
     Dates: start: 20120807
  6. BENADRYL (CANADA) [Concomitant]
     Route: 048
     Dates: start: 20120807
  7. SOLU-MEDROL [Concomitant]
     Route: 042
     Dates: start: 20120807
  8. ACETYLSALICYLIC ACID [Concomitant]
  9. CLOBAZAM [Concomitant]
  10. LIPITOR [Concomitant]
  11. DOCUSATE SODIUM [Concomitant]
  12. DILANTIN [Concomitant]
  13. VITAMIN B12 [Concomitant]
  14. PREDNISONE [Concomitant]
  15. IMURAN [Concomitant]
  16. PANTOPRAZOLE [Concomitant]
  17. ACETYLCYSTEINE [Concomitant]
  18. OXIS-TURBOHALER [Concomitant]
  19. SENOKOT [Concomitant]
  20. SPIRIVA [Concomitant]
  21. METOCLOPRAMIDE [Concomitant]
  22. LACTULOSE [Concomitant]
  23. PROLIA [Concomitant]
     Route: 065
     Dates: start: 201309

REACTIONS (4)
  - Atrioventricular block [Recovered/Resolved]
  - Weight decreased [Unknown]
  - Nausea [Unknown]
  - Abdominal distension [Unknown]
